FAERS Safety Report 13000636 (Version 4)
Quarter: 2017Q1

REPORT INFORMATION
  Report Type: Spontaneous
  Country: JP (occurrence: JP)
  Receive Date: 20161206
  Receipt Date: 20170209
  Transmission Date: 20170428
  Serious: Yes (Hospitalization, Other)
  Sender: FDA-Public Use
  Company Number: JP-AMGEN-JPNSP2016171366

PATIENT
  Age: 66 Year
  Sex: Male
  Weight: 47 kg

DRUGS (1)
  1. ENBREL [Suspect]
     Active Substance: ETANERCEPT
     Indication: RHEUMATOID ARTHRITIS
     Dosage: 25 MG, 1X/2WEEK
     Route: 058
     Dates: start: 2015, end: 201610

REACTIONS (1)
  - Lupus nephritis [Unknown]

NARRATIVE: CASE EVENT DATE: 20161121
